FAERS Safety Report 4283728-6 (Version None)
Quarter: 2004Q1

REPORT INFORMATION
  Report Type: 
  Country: None (occurrence: None)
  Receive Date: 20040115
  Receipt Date: 20030131
  Transmission Date: 20041129
  Serious: Yes (Hospitalization)
  Sender: FDA-Public Use
  Company Number: NSADSS2003004944

PATIENT
  Age: 66 Year
  Sex: Female
  Weight: 56.6996 kg

DRUGS (6)
  1. DOXIL [Suspect]
     Indication: BREAST CANCER FEMALE
     Dosage: 50 MG, 1 IN 28 DAY, INTRAVENOUS DRIP
     Route: 041
     Dates: start: 20020911, end: 20021204
  2. MEGACE [Concomitant]
  3. COUMADIN [Concomitant]
  4. ZOMETA [Concomitant]
  5. DECADRON [Concomitant]
  6. KYTRIL [Concomitant]

REACTIONS (6)
  - BACK PAIN [None]
  - DYSPNOEA [None]
  - PERICARDIAL EFFUSION [None]
  - PLEURAL EFFUSION [None]
  - URINARY TRACT INFECTION [None]
  - WHEEZING [None]
